FAERS Safety Report 9986829 (Version 1)
Quarter: 2014Q1

REPORT INFORMATION
  Report Type: Spontaneous
  Country: US (occurrence: US)
  Receive Date: 20140307
  Receipt Date: 20140307
  Transmission Date: 20141002
  Serious: Yes (Other)
  Sender: FDA-Public Use
  Company Number: US-ELI_LILLY_AND_COMPANY-US201403000795

PATIENT
  Sex: Female

DRUGS (10)
  1. HUMULIN NPH [Suspect]
     Indication: DIABETES MELLITUS
     Route: 065
  2. HUMALOG LISPRO [Suspect]
     Indication: DIABETES MELLITUS
     Route: 065
  3. COZAAR [Concomitant]
  4. CRESTOR [Concomitant]
  5. WELLBUTRIN [Concomitant]
  6. BUSPAR [Concomitant]
  7. XANAX [Concomitant]
  8. REMERON [Concomitant]
  9. SYSTANE [Concomitant]
     Indication: DRY EYE
  10. PRED FORTE [Concomitant]
     Indication: INFLAMMATION

REACTIONS (6)
  - Blindness [Unknown]
  - Retinal injury [Unknown]
  - Eye haemorrhage [Unknown]
  - Cataract [Unknown]
  - Drug ineffective [Unknown]
  - Blood glucose increased [Unknown]
